FAERS Safety Report 8760106 (Version 1)
Quarter: 2012Q4

REPORT INFORMATION
  Report Type: 
  Country: CN (occurrence: CN)
  Receive Date: 20120829
  Receipt Date: 20120829
  Transmission Date: 20130627
  Serious: Yes (Hospitalization)
  Sender: FDA-Public Use
  Company Number: CN-ASTRAZENECA-2012SE64645

PATIENT
  Age: 26214 Day
  Sex: Male
  Weight: 67 kg

DRUGS (1)
  1. GOSERELIN [Suspect]
     Indication: PROSTATE CANCER STAGE 0
     Route: 058
     Dates: start: 20110401, end: 20110928

REACTIONS (1)
  - Pulmonary embolism [Recovering/Resolving]
